FAERS Safety Report 25829316 (Version 2)
Quarter: 2025Q4

REPORT INFORMATION
  Report Type: Other
  Country: US (occurrence: US)
  Receive Date: 20250922
  Receipt Date: 20251029
  Transmission Date: 20260118
  Serious: No
  Sender: TRAVERE THERAPEUTICS
  Company Number: US-TRAVERE-2025TVT01331

PATIENT
  Age: 34 Year
  Sex: Female

DRUGS (3)
  1. FILSPARI [Suspect]
     Active Substance: SPARSENTAN
     Indication: IgA nephropathy
     Route: 048
     Dates: start: 20250710
  2. FILSPARI [Suspect]
     Active Substance: SPARSENTAN
     Route: 048
     Dates: start: 20250724
  3. ZEPBOUND [Concomitant]
     Active Substance: TIRZEPATIDE

REACTIONS (3)
  - Gastrooesophageal reflux disease [Unknown]
  - Fatigue [None]
  - Hypotension [Unknown]
